FAERS Safety Report 4694021-1 (Version None)
Quarter: 2005Q2

REPORT INFORMATION
  Report Type: 
  Country: None (occurrence: None)
  Receive Date: 20050616
  Receipt Date: 20050303
  Transmission Date: 20051028
  Serious: Yes (Other)
  Sender: FDA-Public Use
  Company Number: 2005024489

PATIENT
  Sex: Male

DRUGS (3)
  1. NICORETTE [Suspect]
     Indication: SMOKING CESSATION THERAPY
     Dosage: 2 CARTRIDGES DAILY, INHALATION
     Route: 055
     Dates: start: 20020101
  2. ZOPICLONE (ZOPICLONE) [Concomitant]
  3. SULPIRIDE (SULPIRIDE) [Concomitant]

REACTIONS (7)
  - ABDOMINAL DISTENSION [None]
  - ANXIETY [None]
  - DEPENDENCE [None]
  - GASTRIC DISORDER [None]
  - INAPPROPRIATE SCHEDULE OF DRUG ADMINISTRATION [None]
  - RHINORRHOEA [None]
  - WEIGHT INCREASED [None]
